FAERS Safety Report 25488553 (Version 1)
Quarter: 2025Q2

REPORT INFORMATION
  Report Type: Spontaneous
  Country: US (occurrence: US)
  Receive Date: 20250627
  Receipt Date: 20250627
  Transmission Date: 20250717
  Serious: Yes (Death, Hospitalization, Other)
  Sender: Haleon PLC
  Company Number: US-HALEON-2249477

PATIENT
  Age: 68 Year
  Sex: Male

DRUGS (1)
  1. ACETAMINOPHEN [Suspect]
     Active Substance: ACETAMINOPHEN
     Indication: Product used for unknown indication

REACTIONS (25)
  - Disease progression [Fatal]
  - Faeces discoloured [Unknown]
  - Metabolic encephalopathy [Unknown]
  - Acute hepatic failure [Unknown]
  - Acute kidney injury [Unknown]
  - Coagulopathy [Unknown]
  - Endotracheal intubation [Unknown]
  - Hypotension [Unknown]
  - Anaemia [Unknown]
  - Hepatic steatosis [Unknown]
  - Bladder mass [Unknown]
  - Haematoma [Unknown]
  - Cyst [Unknown]
  - Shock [Unknown]
  - Overdose [Unknown]
  - Toxicity to various agents [Unknown]
  - Acute hepatic failure [Unknown]
  - Autoimmune hepatitis [Unknown]
  - Haematemesis [Unknown]
  - Penile haemorrhage [Unknown]
  - Upper gastrointestinal haemorrhage [Unknown]
  - Ascites [Unknown]
  - Abdominal hernia [Unknown]
  - Generalised oedema [Unknown]
  - Pulse absent [Unknown]
